FAERS Safety Report 15963909 (Version 2)
Quarter: 2022Q2

REPORT INFORMATION
  Report Type: Spontaneous
  Country: US (occurrence: US)
  Receive Date: 20190214
  Receipt Date: 20220422
  Transmission Date: 20220720
  Serious: Yes (Hospitalization)
  Sender: FDA-Public Use
  Company Number: US-TEVA-2019-US-1010345

PATIENT
  Age: 29 Year
  Sex: Female

DRUGS (13)
  1. AZITHROMYCIN [Suspect]
     Active Substance: AZITHROMYCIN
     Indication: Pharyngitis
     Dosage: RECEIVED THE WEEK BEFORE ANAL SPHINCTEROTOMY AND HAEMORRHOIDECTOMY, PERFORMED IN -AUG-2015.
     Route: 065
  2. CIPROFLOXACIN [Suspect]
     Active Substance: CIPROFLOXACIN
     Indication: Perirectal abscess
     Dosage: STARTED A WEEK AFTER ANAL SPHINCTEROTOMY AND HAEMORRHOIDECTOMY
     Route: 048
  3. CIPROFLOXACIN [Suspect]
     Active Substance: CIPROFLOXACIN
     Indication: Dysuria
     Dosage: RECEIVED MULTIPLE COURSES ON AND OFF
     Route: 065
     Dates: start: 201512, end: 201601
  4. CIPROFLOXACIN [Suspect]
     Active Substance: CIPROFLOXACIN
     Dosage: RECEIVED ADDITIONAL 2-WEEK COURSE IN SEPTEMBER 2015
     Route: 065
     Dates: start: 201509
  5. CIPROFLOXACIN [Suspect]
     Active Substance: CIPROFLOXACIN
     Route: 048
     Dates: start: 201604
  6. CLINDAMYCIN [Suspect]
     Active Substance: CLINDAMYCIN
     Indication: Antibiotic prophylaxis
     Dosage: SINGLE DOSE PRIOR TO PERIANAL ABSCESS INCISION
     Route: 065
     Dates: start: 201509
  7. CLINDAMYCIN [Suspect]
     Active Substance: CLINDAMYCIN
     Indication: Pharyngitis streptococcal
     Dosage: FOR AN EPISODE OF GROUP C STREPTOCOCCAL-POSITIVE PHARYNGITIS
     Route: 065
     Dates: start: 201511
  8. CLINDAMYCIN [Suspect]
     Active Substance: CLINDAMYCIN
     Indication: Beta haemolytic streptococcal infection
     Dosage: TWO WEEKS AFTER TONSILLECTOMY
     Route: 065
     Dates: start: 201602
  9. FLUCONAZOLE [Suspect]
     Active Substance: FLUCONAZOLE
     Indication: Vulvovaginal candidiasis
     Route: 048
     Dates: start: 201603
  10. RIFAXIMIN [Suspect]
     Active Substance: RIFAXIMIN
     Indication: Diarrhoea
     Route: 065
     Dates: start: 201703
  11. METRONIDAZOLE [Concomitant]
     Active Substance: METRONIDAZOLE
     Indication: Bacterial vaginosis
     Dosage: STARTED PRIOR TO PERIANAL ABSCESS INCISION
     Route: 065
     Dates: start: 201509
  12. METRONIDAZOLE [Concomitant]
     Active Substance: METRONIDAZOLE
     Dosage: RECEIVED MULTIPLE COURSES ON AND OFF
     Route: 065
     Dates: start: 201512, end: 201601
  13. METRONIDAZOLE [Concomitant]
     Active Substance: METRONIDAZOLE
     Route: 048
     Dates: start: 201603

REACTIONS (4)
  - Clostridium difficile infection [Recovered/Resolved]
  - Clostridium difficile colitis [Recovered/Resolved]
  - Diarrhoea [Unknown]
  - Abdominal discomfort [Unknown]
